FAERS Safety Report 6096166-0 (Version None)
Quarter: 2009Q1

REPORT INFORMATION
  Report Type: 
  Country: None (occurrence: None)
  Receive Date: 20090227
  Receipt Date: 20080919
  Transmission Date: 20090719
  Serious: No
  Sender: FDA-Public Use
  Company Number: A0748383A

PATIENT
  Age: 20 Year
  Sex: Female

DRUGS (1)
  1. LAMICTAL [Suspect]
     Indication: PARTIAL SEIZURES
     Dosage: 50MG TWICE PER DAY
     Route: 048
     Dates: start: 20080801

REACTIONS (2)
  - ASTHENIA [None]
  - DIZZINESS [None]
